FAERS Safety Report 6432106-X (Version None)
Quarter: 2009Q4

REPORT INFORMATION
  Report Type: 
  Country: None (occurrence: None)
  Receive Date: 20091109
  Receipt Date: 20091029
  Transmission Date: 20100525
  Serious: No
  Sender: FDA-Public Use
  Company Number: PHHY2009FR38923

PATIENT
  Sex: Male
  Weight: 165 kg

DRUGS (8)
  1. EXELON [Suspect]
     Indication: DEMENTIA ALZHEIMER'S TYPE
     Dosage: 4.5 MG, BID
     Route: 048
     Dates: start: 20090419, end: 20090601
  2. EXELON [Suspect]
     Dosage: 4.5 MG, BID
     Route: 048
     Dates: start: 20090821
  3. EXELON [Suspect]
     Dosage: 4.6 MG, UNK
     Dates: start: 20090601, end: 20090710
  4. EXELON [Suspect]
     Dosage: 9.5 MG
     Dates: start: 20090711, end: 20090821
  5. TAHOR [Concomitant]
     Dosage: 10MG 1DF DAILY
  6. TRANXENE [Concomitant]
     Dosage: 50MG 1-2 DF DAILY
  7. DIAMICRON [Concomitant]
     Dosage: 2 DF DAILY
  8. BETASERC [Concomitant]
     Dosage: 1DF DAILY

REACTIONS (6)
  - AGGRESSION [None]
  - AGITATION [None]
  - APPLICATION SITE ECZEMA [None]
  - APPLICATION SITE ERYTHEMA [None]
  - APPLICATION SITE PRURITUS [None]
  - RASH [None]
